FAERS Safety Report 9220605 (Version 3)
Quarter: 2013Q4

REPORT INFORMATION
  Report Type: Spontaneous
  Country: US (occurrence: US)
  Receive Date: 20130409
  Receipt Date: 20131230
  Transmission Date: 20140711
  Serious: Yes (Hospitalization)
  Sender: FDA-Public Use
  Company Number: US-BAYER-2013-044794

PATIENT
  Age: 27 Year
  Sex: Female
  Weight: 66 kg

DRUGS (28)
  1. YAZ [Suspect]
     Indication: MENORRHAGIA
     Dosage: UNK
     Dates: start: 200201
  2. YAZ [Suspect]
     Indication: ABDOMINAL PAIN
     Dosage: UNK
     Dates: start: 2006, end: 2011
  3. YASMIN [Suspect]
     Indication: MENORRHAGIA
     Dosage: UNK
     Dates: start: 200201
  4. YASMIN [Suspect]
     Indication: ABDOMINAL PAIN
     Dosage: UNK
     Dates: start: 2006, end: 2011
  5. OCELLA [Suspect]
     Indication: MENORRHAGIA
     Dosage: UNK
     Dates: start: 200201
  6. OCELLA [Suspect]
     Indication: ABDOMINAL PAIN
     Dosage: UNK
     Dates: start: 2006, end: 2011
  7. OCELLA [Suspect]
     Indication: MENORRHAGIA
     Dosage: UNK
     Dates: start: 20110518, end: 20110605
  8. OCELLA [Suspect]
     Indication: MENORRHAGIA
  9. VITAMIN D [Concomitant]
     Indication: SUPPLEMENTATION THERAPY
     Dosage: 1,000 UNITS, DAILY
     Dates: start: 20110518, end: 20110605
  10. PREDNISONE [Concomitant]
     Indication: INFLAMMATION
     Dosage: 5 MG, DAILY
     Dates: start: 20110518, end: 20110605
  11. PREDNISONE [Concomitant]
     Indication: INFLAMMATION
     Dosage: 20 MG, UNK
  12. PREDNISONE [Concomitant]
     Indication: INFLAMMATION
     Dosage: 5 MG, 3 TABLETS A DAY FOR 7 DAYS, 2 A DAY FOR 7 DAYS,1 A DAY FOR 7 DAYS ? A DAY FOR 7 DAYS
     Route: 048
  13. ULTRAM [Concomitant]
     Indication: PAIN
     Dosage: 100 MG, EVERY  8-12 HOURS AS NEEDED
     Dates: start: 20110518, end: 20110605
  14. REMICADE [Concomitant]
     Dosage: 100 MG, UNK
  15. LOTRISONE [Concomitant]
     Dosage: 1-0.05%, SPARINGLY TWICE
  16. FLUCONAZOLE [Concomitant]
     Dosage: 150 MG, 1 TABLET NOW. THEN REPEAT IN 72 HOURS
     Route: 048
     Dates: start: 20110330
  17. METRONIDAZOLE [Concomitant]
     Dosage: 0.75% GEL,
     Route: 067
     Dates: start: 20110321
  18. HYDROCODONE W/ACETAMINOPHEN [Concomitant]
     Dosage: 1 TABLET EVERY 6 HOURS AS NEEDED
     Route: 048
     Dates: start: 20110405, end: 20110428
  19. ONDANSETRON [Concomitant]
     Dosage: 4 MG, 1 TABLET EVERY 8 HOURS AS NEEDED FOR NAUSEA
     Route: 048
     Dates: start: 20110513
  20. HYDROMORPHONE HCL [Concomitant]
     Dosage: 2 MG, TAKE 2 TO 3 TABLETS EVERY 3 HOURS AS NEEDED
     Dates: start: 20110513
  21. IRON [Concomitant]
  22. COLACE [Concomitant]
  23. MAALOX [Concomitant]
  24. LEVOFLOXACIN [Concomitant]
  25. VANCOMYCIN [Concomitant]
  26. CIPROFLOXACIN [Concomitant]
  27. FLAGYL [Concomitant]
  28. MIRTAZAPINE [Concomitant]

REACTIONS (5)
  - Deep vein thrombosis [None]
  - Portal vein thrombosis [None]
  - Pain [None]
  - Injury [None]
  - Depression [None]
